FAERS Safety Report 7272694-7 (Version None)
Quarter: 2010Q4

REPORT INFORMATION
  Report Type: 
  Country: None (occurrence: None)
  Receive Date: 20101208
  Receipt Date: 20100106
  Transmission Date: 20110411
  Serious: Yes (Hospitalization)
  Sender: FDA-Public Use
  Company Number: 1000011153

PATIENT
  Age: 70 Year
  Sex: Female

DRUGS (4)
  1. NAMENDA [Suspect]
     Indication: DEMENTIA
     Dosage: 5 MG ( 5 MG, 1 IN 1 D), ORAL
     Route: 048
     Dates: start: 20091101, end: 20091101
  2. NAMENDA [Suspect]
     Indication: DEMENTIA
     Dosage: 20 MG (10 MG, 2 IN 1 D), ORAL, 10 MG (5 MG, 2 IN 1 D), ORAL, 15 MG (2 IN 1 D)
     Route: 048
     Dates: start: 20091101, end: 20090101
  3. NAMENDA [Suspect]
     Indication: DEMENTIA
     Dosage: 20 MG (10 MG, 2 IN 1 D), ORAL, 10 MG (5 MG, 2 IN 1 D), ORAL, 15 MG (2 IN 1 D)
     Route: 048
     Dates: start: 20090101, end: 20091201
  4. NAMENDA [Suspect]
     Indication: DEMENTIA
     Dosage: 20 MG (10 MG, 2 IN 1 D), ORAL, 10 MG (5 MG, 2 IN 1 D), ORAL, 15 MG (2 IN 1 D)
     Route: 048
     Dates: start: 20091201, end: 20091201

REACTIONS (3)
  - BLOOD SODIUM DECREASED [None]
  - DEHYDRATION [None]
  - NAUSEA [None]
